FAERS Safety Report 5097175-0 (Version None)
Quarter: 2006Q3

REPORT INFORMATION
  Report Type: 
  Country: None (occurrence: None)
  Receive Date: 20060906
  Receipt Date: 20060822
  Transmission Date: 20061208
  Serious: Yes (Hospitalization)
  Sender: FDA-Public Use
  Company Number: US-AMGEN-STX190768

PATIENT
  Sex: Female

DRUGS (1)
  1. ENBREL [Suspect]
     Indication: PSORIATIC ARTHROPATHY
     Dates: start: 20040623

REACTIONS (4)
  - BREAST COSMETIC SURGERY [None]
  - HYPERSENSITIVITY [None]
  - SCIATICA [None]
  - SUTURE RELATED COMPLICATION [None]
